FAERS Safety Report 25170349 (Version 1)
Quarter: 2025Q2

REPORT INFORMATION
  Report Type: Spontaneous
  Country: US (occurrence: US)
  Receive Date: 20250408
  Receipt Date: 20250408
  Transmission Date: 20250717
  Serious: Yes (Hospitalization, Other)
  Sender: AMGEN
  Company Number: US-AMGEN-USASP2025063146

PATIENT
  Age: 68 Year
  Sex: Female

DRUGS (3)
  1. PREDNISONE [Suspect]
     Active Substance: PREDNISONE
     Indication: Giant cell arteritis
     Route: 065
  2. ASPIRIN [Concomitant]
     Active Substance: ASPIRIN
  3. CILOSTAZOL [Concomitant]
     Active Substance: CILOSTAZOL

REACTIONS (4)
  - Deafness unilateral [Unknown]
  - Retinal artery occlusion [Unknown]
  - Syphilis [Unknown]
  - Off label use [Unknown]
